FAERS Safety Report 9369297 (Version 1)
Quarter: 2013Q2

REPORT INFORMATION
  Report Type: Spontaneous
  Country: US (occurrence: None)
  Receive Date: 20130625
  Receipt Date: 20130625
  Transmission Date: 20140414
  Serious: No
  Sender: FDA-Public Use
  Company Number: None

PATIENT
  Sex: Male

DRUGS (1)
  1. TIKOSYN [Suspect]
     Indication: ATRIAL FIBRILLATION
     Route: 048
     Dates: start: 20130329, end: 20130520

REACTIONS (5)
  - Angina pectoris [None]
  - Swelling [None]
  - Dyspnoea [None]
  - Pulmonary oedema [None]
  - Blood pressure inadequately controlled [None]
